FAERS Safety Report 9660490 (Version 2)
Quarter: 2014Q3

REPORT INFORMATION
  Report Type: Spontaneous
  Country: US (occurrence: US)
  Receive Date: 20131031
  Receipt Date: 20140730
  Transmission Date: 20150326
  Serious: Yes (Hospitalization, Other)
  Sender: FDA-Public Use
  Company Number: US-009507513-1310USA013177

PATIENT
  Sex: Female

DRUGS (1)
  1. NUVARING [Suspect]
     Active Substance: ETHINYL ESTRADIOL\ETONOGESTREL
     Indication: CONTRACEPTION
     Dosage: UNK
     Route: 067
     Dates: start: 201110, end: 20120509

REACTIONS (9)
  - Pulmonary embolism [Unknown]
  - Oropharyngeal pain [Unknown]
  - Insomnia [Unknown]
  - Endometrial ablation [Unknown]
  - Menorrhagia [Unknown]
  - Anxiety [Unknown]
  - Anaemia [Unknown]
  - Urinary tract infection [Unknown]
  - Depression [Unknown]

NARRATIVE: CASE EVENT DATE: 201204
